FAERS Safety Report 17145277 (Version 1)
Quarter: 2019Q4

REPORT INFORMATION
  Report Type: Spontaneous
  Country: US (occurrence: US)
  Receive Date: 20191211
  Receipt Date: 20191211
  Transmission Date: 20200122
  Serious: No
  Sender: FDA-Public Use
  Company Number: None

PATIENT
  Sex: Female

DRUGS (8)
  1. PEPCID [Concomitant]
     Active Substance: FAMOTIDINE
  2. OCALIVA [Suspect]
     Active Substance: OBETICHOLIC ACID
     Indication: PRIMARY BILIARY CHOLANGITIS
     Route: 048
     Dates: start: 20191113
  3. LOSARTAN. [Concomitant]
     Active Substance: LOSARTAN
  4. PRESERVISION [Concomitant]
     Active Substance: MINERALS\VITAMINS
  5. DILANTIN [Concomitant]
     Active Substance: PHENYTOIN
  6. EZETIM/SIMVA [Concomitant]
  7. VITAMIN D [Concomitant]
     Active Substance: VITAMIN D NOS
  8. URSODIOL. [Concomitant]
     Active Substance: URSODIOL

REACTIONS (1)
  - Rash [None]
